FAERS Safety Report 25790745 (Version 1)
Quarter: 2025Q3

REPORT INFORMATION
  Report Type: Report from Study
  Country: CA (occurrence: None)
  Receive Date: 20250911
  Receipt Date: 20250911
  Transmission Date: 20251020
  Serious: Yes (Other)
  Sender: ORION
  Company Number: CA-PFIZER INC-202500177661

PATIENT
  Age: 77 Year
  Sex: Female

DRUGS (24)
  1. METHOTREXATE [Suspect]
     Active Substance: METHOTREXATE
     Indication: Pain
  2. METHOTREXATE [Suspect]
     Active Substance: METHOTREXATE
     Indication: Rheumatoid arthritis
  3. ACTEMRA [Suspect]
     Active Substance: TOCILIZUMAB
     Indication: Rheumatoid arthritis
  4. ACTEMRA [Suspect]
     Active Substance: TOCILIZUMAB
  5. ACTEMRA [Suspect]
     Active Substance: TOCILIZUMAB
  6. ACTEMRA [Suspect]
     Active Substance: TOCILIZUMAB
  7. AMLODIPINE [Concomitant]
     Active Substance: AMLODIPINE BESYLATE
  8. APIXABAN [Concomitant]
     Active Substance: APIXABAN
  9. BISOPROLOL [Concomitant]
     Active Substance: BISOPROLOL
  10. BREO ELLIPTA [Concomitant]
     Active Substance: FLUTICASONE FUROATE\VILANTEROL TRIFENATATE
  11. CYANOCOBALAMIN [Concomitant]
     Active Substance: CYANOCOBALAMIN
  12. .ALPHA.-TOCOPHEROL, D- [Concomitant]
     Active Substance: .ALPHA.-TOCOPHEROL, D-
  13. EZETIMIBE [Concomitant]
     Active Substance: EZETIMIBE
  14. GABAPENTIN [Concomitant]
     Active Substance: GABAPENTIN
     Indication: Pain
  15. GLUCOSAMINE [Concomitant]
     Active Substance: GLUCOSAMINE
  16. HYDROXYCHLOROQUINE SULFATE [Concomitant]
     Active Substance: HYDROXYCHLOROQUINE SULFATE
     Indication: Rheumatoid arthritis
  17. LIPITOR [Concomitant]
     Active Substance: ATORVASTATIN CALCIUM
  18. OLMESARTAN [Concomitant]
     Active Substance: OLMESARTAN
  19. ORENCIA [Concomitant]
     Active Substance: ABATACEPT
  20. OXYGEN [Concomitant]
     Active Substance: OXYGEN
  21. PREDNISONE [Concomitant]
     Active Substance: PREDNISONE
     Indication: Pain
  22. ALBUTEROL [Concomitant]
     Active Substance: ALBUTEROL
  23. TYLENOL ARTHRITIS PAIN [Concomitant]
     Active Substance: ACETAMINOPHEN
     Indication: Arthritis
  24. CHOLECALCIFEROL [Concomitant]
     Active Substance: CHOLECALCIFEROL

REACTIONS (4)
  - Carcinoid tumour of the gastrointestinal tract [Unknown]
  - Drug ineffective for unapproved indication [Unknown]
  - Lung disorder [Unknown]
  - Product use in unapproved indication [Unknown]
